FAERS Safety Report 5122074-5 (Version None)
Quarter: 2006Q4

REPORT INFORMATION
  Report Type: 
  Country: None (occurrence: None)
  Receive Date: 20061004
  Receipt Date: 20061004
  Transmission Date: 20070319
  Serious: Yes (Life-Threatening, Hospitalization)
  Sender: FDA-Public Use
  Company Number: None

PATIENT
  Age: 86 Year
  Sex: Female
  Weight: 90.7194 kg

DRUGS (16)
  1. LUNESTA [Suspect]
     Indication: SLEEP DISORDER
     Dosage: ONE MG ONCE
     Dates: start: 20060616
  2. PLAVIX GENERIC CLOPIDOGREL [Concomitant]
  3. SPIRONOLACTONE [Concomitant]
  4. ALLOPURINOL [Concomitant]
  5. ZOCOR [Concomitant]
  6. FURSEMIDE [Concomitant]
  7. OMEPRAZOLE [Concomitant]
  8. LEVOXYL [Concomitant]
  9. ISOSORB. MONITRATE [Concomitant]
  10. DITROPAN XL [Concomitant]
  11. VANTOVEN (COUMADIN) [Concomitant]
  12. STOOL SOFTENER [Concomitant]
  13. TRIPLE OMEGA [Concomitant]
  14. GLUCOSAMINE CH [Concomitant]
  15. MULTI-VITAMIN [Concomitant]
  16. CALCIUM GLUCONATE [Concomitant]

REACTIONS (3)
  - DIZZINESS [None]
  - VERTIGO [None]
  - VISION BLURRED [None]
